FAERS Safety Report 20420645 (Version 1)
Quarter: 2022Q1

REPORT INFORMATION
  Report Type: Spontaneous
  Country: CA (occurrence: CA)
  Receive Date: 20220203
  Receipt Date: 20220203
  Transmission Date: 20220423
  Serious: Yes (Other)
  Sender: FDA-Public Use
  Company Number: CA-GLAXOSMITHKLINE-CA2022AMR017943

PATIENT
  Age: 67 Year
  Sex: Female
  Weight: 72 kg

DRUGS (1)
  1. ZEJULA [Suspect]
     Active Substance: NIRAPARIB
     Indication: Ovarian neoplasm
     Dosage: 300 MG, QD
     Route: 048

REACTIONS (3)
  - Loss of consciousness [Recovered/Resolved]
  - Dizziness [Recovered/Resolved]
  - Vomiting [Recovered/Resolved]
